FAERS Safety Report 14707369 (Version 1)
Quarter: 2018Q2

REPORT INFORMATION
  Report Type: Spontaneous
  Country: US (occurrence: US)
  Receive Date: 20180403
  Receipt Date: 20180403
  Transmission Date: 20180711
  Serious: No
  Sender: FDA-Public Use
  Company Number: US-AUROBINDO-AUR-APU-2017-37301

PATIENT
  Sex: Male
  Weight: 67.12 kg

DRUGS (2)
  1. ACTOPLUS MET [Suspect]
     Active Substance: METFORMIN HYDROCHLORIDE\PIOGLITAZONE HYDROCHLORIDE
  2. PIOGLITAZONE HYDROCHLORIDE + METFOMIN HYDROCHLORIDE TABLETS 15MG/500MG [Suspect]
     Active Substance: METFORMIN HYDROCHLORIDE\PIOGLITAZONE HYDROCHLORIDE
     Indication: DIABETES MELLITUS
     Dosage: 1 DF, TWO TIMES A DAY
     Route: 065
     Dates: start: 20170606

REACTIONS (2)
  - Drug ineffective [Not Recovered/Not Resolved]
  - Blood glucose fluctuation [Not Recovered/Not Resolved]
